FAERS Safety Report 11363069 (Version 3)
Quarter: 2019Q3

REPORT INFORMATION
  Report Type: Spontaneous
  Country: FR (occurrence: FR)
  Receive Date: 20150810
  Receipt Date: 20190926
  Transmission Date: 20191004
  Serious: Yes (Other)
  Sender: FDA-Public Use
  Company Number: PHHY2015FR074206

PATIENT
  Age: 60 Year
  Sex: Female

DRUGS (3)
  1. FLUCONAZOLE. [Concomitant]
     Active Substance: FLUCONAZOLE
     Indication: HEPATOTOXICITY
  2. GLIVEC [Suspect]
     Active Substance: IMATINIB MESYLATE
     Indication: NEOPLASM MALIGNANT
     Dosage: 800 MG, QD
     Route: 048
  3. L-ASPARAGINASE [Interacting]
     Active Substance: ASPARAGINASE
     Indication: HEPATOTOXICITY
     Route: 065

REACTIONS (5)
  - Blood alkaline phosphatase increased [Unknown]
  - Transaminases increased [Unknown]
  - Drug interaction [Unknown]
  - Hepatotoxicity [Unknown]
  - Blood bilirubin increased [Unknown]
